FAERS Safety Report 21995433 (Version 1)
Quarter: 2023Q1

REPORT INFORMATION
  Report Type: Spontaneous
  Country: US (occurrence: None)
  Receive Date: 20230214
  Receipt Date: 20230214
  Transmission Date: 20230417
  Serious: Yes (unspecified)
  Sender: FDA-Public Use
  Company Number: None

PATIENT
  Age: 25 Year
  Sex: Female
  Weight: 130.05 kg

DRUGS (3)
  1. CLOZAPINE [Suspect]
     Active Substance: CLOZAPINE
     Dosage: FREQUENCY : DAILY;?
     Route: 048
  2. OLANZAPINE [Concomitant]
     Active Substance: OLANZAPINE
  3. RISPERIDONE [Concomitant]
     Active Substance: RISPERIDONE

REACTIONS (5)
  - Eosinophilia [None]
  - Antipsychotic drug level increased [None]
  - C-reactive protein increased [None]
  - Electrocardiogram T wave amplitude decreased [None]
  - Drug metabolising enzyme decreased [None]

NARRATIVE: CASE EVENT DATE: 20221007
